FAERS Safety Report 8789139 (Version 1)
Quarter: 2012Q4

REPORT INFORMATION
  Report Type: Spontaneous
  Country: US (occurrence: None)
  Receive Date: 20120904
  Receipt Date: 20120904
  Transmission Date: 20130627
  Serious: Yes (Hospitalization)
  Sender: FDA-Public Use
  Company Number: 001007841A

PATIENT
  Sex: Female

DRUGS (1)
  1. INSTANT DAILY TINTED MOISTURIZER [Suspect]
     Dosage: DERMAL DAILY
     Dates: start: 20110904

REACTIONS (1)
  - Rash generalised [None]
